FAERS Safety Report 7661500-4 (Version None)
Quarter: 2011Q3

REPORT INFORMATION
  Report Type: 
  Country: None (occurrence: None)
  Receive Date: 20110805
  Receipt Date: 20101019
  Transmission Date: 20111222
  Serious: No
  Sender: FDA-Public Use
  Company Number: US-ABBOTT-10P-163-0679647-00

PATIENT
  Sex: Male
  Weight: 92.616 kg

DRUGS (6)
  1. NIASPAN [Suspect]
     Dates: start: 20100101, end: 20100101
  2. TRAZODONE HCL [Concomitant]
     Indication: ANTIDEPRESSANT THERAPY
  3. NIASPAN [Suspect]
     Indication: BLOOD CHOLESTEROL INCREASED
     Dates: start: 20100101, end: 20100101
  4. ELAVIL [Concomitant]
     Indication: SLEEP DISORDER THERAPY
  5. CRESTOR [Concomitant]
     Indication: BLOOD CHOLESTEROL INCREASED
  6. ATENOLOL [Concomitant]
     Indication: ARRHYTHMIA

REACTIONS (1)
  - HIGH DENSITY LIPOPROTEIN DECREASED [None]
